FAERS Safety Report 9541479 (Version 1)
Quarter: 2013Q2

REPORT INFORMATION
  Report Type: Spontaneous
  Country: US (occurrence: None)
  Receive Date: 20130524
  Receipt Date: 20130524
  Transmission Date: 20140414
  Serious: Yes (Other)
  Sender: FDA-Public Use
  Company Number: PHEH2013US003123

PATIENT
  Sex: Female

DRUGS (7)
  1. GILENYA (FINGOLIMOD) CAPSULE [Suspect]
     Indication: MULTIPLE SCLEROSIS
     Dosage: UNK , ORAL
     Route: 048
     Dates: start: 201211
  2. CARBAMAZEPINE (CARBAMAZEPINE) [Concomitant]
  3. PROVIGIL (MODAFINIL) [Concomitant]
  4. NEXIUM (AMOXICILLIN TRIHYDRATE, CLARITHROMYCIN, ESOMEPRAZOLE MAGNESIUM) [Concomitant]
  5. TOPIRAMATE (TOPIRAMATE) [Concomitant]
  6. VIT D  (ERGOCALCIFEROL) [Concomitant]
  7. TESTOSTERONE (TESTOSTERONE) [Concomitant]

REACTIONS (1)
  - No adverse event [None]
